FAERS Safety Report 20199499 (Version 2)
Quarter: 2022Q1

REPORT INFORMATION
  Report Type: Report from Study
  Country: US (occurrence: US)
  Receive Date: 20211217
  Receipt Date: 20220131
  Transmission Date: 20220423
  Serious: Yes (Death, Hospitalization)
  Sender: FDA-Public Use
  Company Number: US-OTSUKA-2021_043888

PATIENT
  Age: 80 Year

DRUGS (1)
  1. DEXTROMETHORPHAN HYDROBROMIDE\QUINIDINE SULFATE [Suspect]
     Active Substance: DEXTROMETHORPHAN HYDROBROMIDE\QUINIDINE SULFATE
     Indication: Affect lability
     Dosage: UNK, BID
     Route: 065

REACTIONS (2)
  - Death [Fatal]
  - Fall [Unknown]

NARRATIVE: CASE EVENT DATE: 20211108
